FAERS Safety Report 18875573 (Version 7)
Quarter: 2021Q3

REPORT INFORMATION
  Report Type: Spontaneous
  Country: CA (occurrence: CA)
  Receive Date: 20210211
  Receipt Date: 20210730
  Transmission Date: 20211014
  Serious: Yes (Hospitalization)
  Sender: FDA-Public Use
  Company Number: CA-CELLTRION INC.-2020CA019898

PATIENT

DRUGS (13)
  1. INFLECTRA [Suspect]
     Active Substance: INFLIXIMAB-DYYB
     Dosage: 300 MG, AT WEEK 0, 2, 6,THEN EVERY 8 WEEKS (WEEK 2 DOSE)
     Route: 042
     Dates: start: 20200318, end: 20200318
  2. INFLECTRA [Suspect]
     Active Substance: INFLIXIMAB-DYYB
     Dosage: 300 MG, (RE?INDUCTION) AT WEEK 0, 2, 6,THEN EVERY 8 WEEKS WEEK 6 DOSE (RE?INDUCTION)
     Route: 042
     Dates: start: 20200918, end: 20200918
  3. INFLECTRA [Suspect]
     Active Substance: INFLIXIMAB-DYYB
     Dosage: 600 MG EVERY 8 WEEKS
     Route: 042
     Dates: start: 20210407, end: 20210407
  4. PREDNISONE. [Concomitant]
     Active Substance: PREDNISONE
     Dosage: DOSE UNK, FOR 2 WEEKS
     Route: 065
  5. INFLECTRA [Suspect]
     Active Substance: INFLIXIMAB-DYYB
     Dosage: 300 MG, (RE?INDUCTION) AT WEEK 0, 2, 6,THEN EVERY 8 WEEKS
     Route: 042
     Dates: start: 20201116
  6. INFLECTRA [Suspect]
     Active Substance: INFLIXIMAB-DYYB
     Dosage: 300 MG, (RE?INDUCTION) AT WEEK 0, 2, 6,THEN EVERY 8 WEEKS
     Route: 042
     Dates: start: 20210205
  7. INFLECTRA [Suspect]
     Active Substance: INFLIXIMAB-DYYB
     Dosage: 300 MG, AT WEEK 0, 2, 6,THEN EVERY 8 WEEKS (WEEK 6 DOSE)
     Route: 042
     Dates: start: 20200415, end: 20200415
  8. INFLECTRA [Suspect]
     Active Substance: INFLIXIMAB-DYYB
     Dosage: 300 MG, (RE?INDUCTION) AT WEEK 0, 2, 6,THEN EVERY 8 WEEKS WEEK 2 DOSE (RE?INDUCTION)
     Route: 042
     Dates: start: 20200825, end: 20200825
  9. INFLECTRA [Suspect]
     Active Substance: INFLIXIMAB-DYYB
     Dosage: 300 MG, (RE?INDUCTION) AT WEEK 0, 2, 6,THEN EVERY 8 WEEKS
     Route: 042
     Dates: start: 20210407
  10. FLAGYL [Concomitant]
     Active Substance: METRONIDAZOLE\METRONIDAZOLE HYDROCHLORIDE
     Dosage: 250 MG, 2X/DAY (4+ WEEKS)
     Route: 065
  11. INFLECTRA [Suspect]
     Active Substance: INFLIXIMAB-DYYB
     Dosage: 300 MG, AT WEEK 0, 2, 6,THEN EVERY 8 WEEKS (WEEK 2 DOSE)
     Route: 042
     Dates: start: 20200318, end: 20200318
  12. INFLECTRA [Suspect]
     Active Substance: INFLIXIMAB-DYYB
     Indication: CROHN^S DISEASE
     Dosage: 300 MG, AT WEEK 0, 2, 6,THEN EVERY 8 WEEKS (WEEK 0 DOSE)
     Route: 042
     Dates: start: 20200305, end: 20200305
  13. INFLECTRA [Suspect]
     Active Substance: INFLIXIMAB-DYYB
     Dosage: 300 MG, (RE?INDUCTION) AT WEEK 0, 2, 6,THEN EVERY 8 WEEKS (WEEK 0 DOSE (RE?INDUCTION)
     Route: 042
     Dates: start: 20200811, end: 20200811

REACTIONS (10)
  - Adhesion [Unknown]
  - Weight increased [Unknown]
  - Scar [Unknown]
  - Blood pressure fluctuation [Unknown]
  - Drug specific antibody present [Unknown]
  - Hypotension [Unknown]
  - Gastrointestinal obstruction [Unknown]
  - Intentional product use issue [Unknown]
  - Inappropriate schedule of product administration [Unknown]
  - Off label use [Unknown]

NARRATIVE: CASE EVENT DATE: 20200811
